FAERS Safety Report 22631053 (Version 1)
Quarter: 2023Q2

REPORT INFORMATION
  Report Type: Report from Study
  Country: US (occurrence: US)
  Receive Date: 20230622
  Receipt Date: 20230622
  Transmission Date: 20230722
  Serious: No
  Sender: FDA-Public Use
  Company Number: US-ACADIA PHARMACEUTICALS INC.-ACA-2023-TRF-002109

PATIENT
  Age: 6 Year
  Sex: Female

DRUGS (3)
  1. DAYBUE [Suspect]
     Active Substance: TROFINETIDE
     Indication: Rett syndrome
     Dosage: 50 MILLILITER, BID
     Route: 048
     Dates: start: 20230525
  2. CLOBAZAM [Concomitant]
     Active Substance: CLOBAZAM
     Dosage: 4.5 MILLIGRAM, BID
  3. ZONEGRAN [Concomitant]
     Active Substance: ZONISAMIDE
     Dosage: 125 MILLIGRAM, BID, 5 TABS

REACTIONS (5)
  - Insomnia [Unknown]
  - Constipation [Recovered/Resolved]
  - Moaning [Recovered/Resolved]
  - Crying [Recovered/Resolved]
  - Diarrhoea [Not Recovered/Not Resolved]

NARRATIVE: CASE EVENT DATE: 20230528
